FAERS Safety Report 8765509 (Version 3)
Quarter: 2012Q4

REPORT INFORMATION
  Report Type: 
  Country: GB (occurrence: GB)
  Receive Date: 20120903
  Receipt Date: 20121012
  Transmission Date: 20130627
  Serious: Yes (Disabling)
  Sender: FDA-Public Use
  Company Number: GB-PFIZER INC-2012209897

PATIENT
  Age: 85 Year
  Sex: Male
  Weight: 84.8 kg

DRUGS (14)
  1. METRONIDAZOLE [Suspect]
     Dosage: UNK
     Dates: start: 20120725, end: 20120801
  2. METRONIDAZOLE [Suspect]
     Dosage: UNK
     Dates: start: 20120725, end: 20120801
  3. WARFARIN SODIUM [Concomitant]
     Dosage: UNK
     Dates: start: 20120423, end: 20120607
  4. FUROSEMIDE [Concomitant]
     Dosage: UNK
     Dates: start: 20120510, end: 20120607
  5. FUROSEMIDE [Concomitant]
     Dates: start: 20120613, end: 20120711
  6. FUROSEMIDE [Concomitant]
     Dates: start: 20120720, end: 20120817
  7. RAMIPRIL [Concomitant]
     Dosage: UNK
     Dates: start: 20120510, end: 20120607
  8. RAMIPRIL [Concomitant]
     Dosage: UNK
     Dates: start: 20120613, end: 20120817
  9. SPIRONOLACTONE [Concomitant]
     Dosage: UNK
     Dates: start: 20120510, end: 20120607
  10. SPIRONOLACTONE [Concomitant]
     Dosage: UNK
     Dates: start: 20120613, end: 20120711
  11. SPIRONOLACTONE [Concomitant]
     Dates: start: 20120716, end: 20120817
  12. ALLEVYN [Concomitant]
     Dosage: UNK
     Dates: start: 20120720, end: 20120730
  13. ALLEVYN [Concomitant]
     Dosage: UNK
     Dates: start: 20120725, end: 20120801
  14. SULFADIAZINE SILVER [Concomitant]
     Dosage: UNK
     Dates: start: 20120720, end: 20120730

REACTIONS (2)
  - Skin swelling [Recovered/Resolved]
  - Pruritus generalised [Unknown]
